FAERS Safety Report 6411156-3 (Version None)
Quarter: 2009Q4

REPORT INFORMATION
  Report Type: 
  Country: None (occurrence: None)
  Receive Date: 20091022
  Receipt Date: 20091016
  Transmission Date: 20100525
  Serious: Yes (Death)
  Sender: FDA-Public Use
  Company Number: US-PFIZER INC-2009279061

PATIENT
  Sex: Male

DRUGS (4)
  1. LIPITOR [Suspect]
     Dosage: UNK
  2. NAPROSYN [Suspect]
     Dosage: UNK
  3. ZETIA [Suspect]
     Dosage: UNK
  4. CIPROFLOXACIN HYDROCHLORIDE [Suspect]
     Dosage: UNK

REACTIONS (2)
  - DEATH [None]
  - DRUG INTOLERANCE [None]
